FAERS Safety Report 6104046-7 (Version None)
Quarter: 2009Q1

REPORT INFORMATION
  Report Type: 
  Country: None (occurrence: None)
  Receive Date: 20090227
  Receipt Date: 20090217
  Transmission Date: 20090719
  Serious: Yes (Hospitalization)
  Sender: FDA-Public Use
  Company Number: GXKR2009FR01413

PATIENT
  Age: 37 Year
  Sex: Male

DRUGS (3)
  1. DOXYCYCLINE [Suspect]
     Indication: ACTINOMYCOTIC PULMONARY INFECTION
     Dosage: 200 MG/DAY, ORAL
     Route: 048
  2. PREDNISONE TAB [Concomitant]
  3. LEVOFLOXACIN [Concomitant]

REACTIONS (4)
  - ABDOMINAL PAIN [None]
  - FATIGUE [None]
  - HEPATITIS ACUTE [None]
  - HEPATITIS TOXIC [None]
